FAERS Safety Report 5407241-5 (Version None)
Quarter: 2007Q3

REPORT INFORMATION
  Report Type: 
  Country: None (occurrence: None)
  Receive Date: 20070807
  Receipt Date: 20070731
  Transmission Date: 20080115
  Serious: Yes (Death, Life-Threatening, Congenital Anomaly)
  Sender: FDA-Public Use
  Company Number: A0668207A

PATIENT
  Sex: Male

DRUGS (1)
  1. PAXIL [Suspect]
     Indication: DRUG USE FOR UNKNOWN INDICATION

REACTIONS (9)
  - AFFECTIVE DISORDER [None]
  - ANXIETY [None]
  - CARDIAC FAILURE [None]
  - DRUG EXPOSURE DURING PREGNANCY [None]
  - FOETAL CARDIAC DISORDER [None]
  - HEART DISEASE CONGENITAL [None]
  - PAIN [None]
  - PULMONARY VASCULAR DISORDER [None]
  - SCAR [None]
